FAERS Safety Report 4809965-7 (Version None)
Quarter: 2005Q4

REPORT INFORMATION
  Report Type: 
  Country: None (occurrence: None)
  Receive Date: 20051024
  Receipt Date: 20051011
  Transmission Date: 20060501
  Serious: Yes (Life-Threatening, Other)
  Sender: FDA-Public Use
  Company Number: 2005122256

PATIENT
  Age: 64 Year
  Sex: Female
  Weight: 86.1834 kg

DRUGS (18)
  1. NITROSTAT [Suspect]
     Indication: ILL-DEFINED DISORDER
     Dosage: (0.3  MG, PRN), SUBLINGUAL
     Route: 057
  2. PLAVIX [Concomitant]
  3. SYNTHROID [Concomitant]
  4. DRISDOL [Concomitant]
  5. FLOVENT [Concomitant]
  6. LOSEC (OMEPRAZOLE) [Concomitant]
  7. SALBUTAMOL (SALBUTAMOL) [Concomitant]
  8. NEO-CAL D (CALCIUM CARBONATE, COLECALCIFROL) [Concomitant]
  9. ACETAMINOPHEN [Concomitant]
  10. ALTACE [Concomitant]
  11. NITRO-DUR 9GLYCERYL TRINITRATE) [Concomitant]
  12. GEN-BUSPIRONE (BUSPIRONE HYDROCHLORIDE [Concomitant]
  13. ESTRADERM [Concomitant]
  14. APO-TRIMIP (TRIMIPRAMINE MALEATE) [Concomitant]
  15. APO-GLYBURIDE (GLIBENCLAMIDE) [Concomitant]
  16. PMS- FENOFIBRATE MICRO (FENOFIBRATE0 [Concomitant]
  17. DILTIAZEM [Concomitant]
  18. APO-TRIAZIDE (HYDROCHLOROTHIAZIDE, TRIAMTRENE) [Concomitant]

REACTIONS (4)
  - BURNING SENSATION [None]
  - CAROTID ARTERY OCCLUSION [None]
  - DRUG INEFFECTIVE [None]
  - PHARMACEUTICAL PRODUCT COMPLAINT [None]
